FAERS Safety Report 21728447 (Version 4)
Quarter: 2023Q1

REPORT INFORMATION
  Report Type: Report from Study
  Country: CA (occurrence: CA)
  Receive Date: 20221214
  Receipt Date: 20230315
  Transmission Date: 20230418
  Serious: Yes (Hospitalization, Other)
  Sender: FDA-Public Use
  Company Number: CA-OTSUKA-2022_009480

PATIENT
  Age: 68 Year
  Sex: Male

DRUGS (4)
  1. CEDAZURIDINE\DECITABINE [Suspect]
     Active Substance: CEDAZURIDINE\DECITABINE
     Indication: Myelodysplastic syndrome
     Dosage: 1 DF, QD (FOR 4 DAYS)/4 TABLETS
     Route: 065
  2. CEDAZURIDINE\DECITABINE [Suspect]
     Active Substance: CEDAZURIDINE\DECITABINE
     Dosage: 3 DF, (3 DOSE WITH FIRST CYCLE)
     Route: 065
     Dates: start: 20220124
  3. CEDAZURIDINE\DECITABINE [Suspect]
     Active Substance: CEDAZURIDINE\DECITABINE
     Dosage: 5 DF (FIVE TABLETS WITH SECOND CYCLE)
     Route: 065
  4. EPREX [Concomitant]
     Active Substance: ERYTHROPOIETIN
     Indication: Product used for unknown indication
     Dosage: UNK
     Route: 065

REACTIONS (10)
  - Biopsy bone marrow [Unknown]
  - Adverse drug reaction [Unknown]
  - Fall [Unknown]
  - Viral infection [Unknown]
  - White blood cell count decreased [Unknown]
  - Platelet count decreased [Recovering/Resolving]
  - Haemoglobin decreased [Unknown]
  - Disease progression [Unknown]
  - Product use issue [Unknown]
  - Therapy cessation [Unknown]

NARRATIVE: CASE EVENT DATE: 20221101
